FAERS Safety Report 22278892 (Version 5)
Quarter: 2023Q4

REPORT INFORMATION
  Report Type: Spontaneous
  Country: JP (occurrence: JP)
  Receive Date: 20230503
  Receipt Date: 20231207
  Transmission Date: 20240110
  Serious: Yes (Hospitalization, Other)
  Sender: FDA-Public Use
  Company Number: JP-Ipsen Biopharmaceuticals, Inc.-2022-12188

PATIENT
  Age: 72 Year
  Sex: Female

DRUGS (18)
  1. LANREOTIDE ACETATE [Suspect]
     Active Substance: LANREOTIDE ACETATE
     Indication: Thyroid stimulating hormone-producing pituitary tumour
     Dosage: 90 MG
     Route: 058
     Dates: start: 20220328, end: 20220818
  2. LANREOTIDE ACETATE [Suspect]
     Active Substance: LANREOTIDE ACETATE
     Dosage: 90 MG
     Route: 058
     Dates: start: 20220915
  3. LANREOTIDE ACETATE [Suspect]
     Active Substance: LANREOTIDE ACETATE
     Dosage: 120 MG
     Route: 058
     Dates: start: 20220328, end: 20220818
  4. CABERGOLINE [Concomitant]
     Active Substance: CABERGOLINE
  5. CABERGOLINE [Concomitant]
     Active Substance: CABERGOLINE
     Dates: end: 20220619
  6. CABERGOLINE [Concomitant]
     Active Substance: CABERGOLINE
     Dosage: 2 MG THRICE WEEKLY (MONDAYS, WEDNESDAYS, AND FRIDAYS) PO 20/JUN/2022-20/JUL/2022
     Dates: start: 20220620, end: 20220720
  7. CABERGOLINE [Concomitant]
     Active Substance: CABERGOLINE
     Dosage: 1 MG THRICE WEEKLY (MONDAYS, WEDNESDAYS, AND FRIDAYS) PO 21/JUL/2022-14/SEP/2022
     Dates: start: 20220721, end: 20220914
  8. CABERGOLINE [Concomitant]
     Active Substance: CABERGOLINE
     Dosage: 1 MG ONCE WEEKLY (MONDAYS) PO 15/SEP/2022-08/NOV/2022
     Dates: start: 20220915, end: 20221108
  9. ELDECALCITOL [Concomitant]
     Active Substance: ELDECALCITOL
     Indication: Osteoporosis
     Route: 048
     Dates: end: 20221011
  10. EVISTA [Concomitant]
     Active Substance: RALOXIFENE HYDROCHLORIDE
     Indication: Osteoporosis
     Dosage: 60 MILLIGRAM/DAY PO OSTEOPOROSIS NI-11/OCT/2022
     Route: 048
     Dates: end: 20221011
  11. ACTONEL [Concomitant]
     Active Substance: RISEDRONATE SODIUM
     Indication: Osteoporosis
     Dosage: 75 MG PER MONTH PO OSTEOPOROSIS 12/OCT/2022-NI
     Route: 048
     Dates: start: 20221012
  12. ESAXERENONE [Concomitant]
     Active Substance: ESAXERENONE
     Indication: Primary hyperaldosteronism
     Dosage: 2.5 MILLIGRAM/DAY PO PRIMARY HYPERALDOSTERONISM NI-07/FEB/2023
     Route: 048
     Dates: end: 20230207
  13. URSO [Concomitant]
     Active Substance: URSODIOL
     Indication: Cholelithiasis
     Route: 048
  14. MAGNESIUM OXIDE [Concomitant]
     Active Substance: MAGNESIUM OXIDE
     Indication: Constipation
     Route: 048
  15. KETOPROFEN [Concomitant]
     Active Substance: KETOPROFEN
     Dosage: 40 MILLIGRAM/DAY TOP LUMBAR SPINAL STENOSIS
  16. METHYLCOBALAMIN [Concomitant]
     Active Substance: METHYLCOBALAMIN
     Indication: Lumbar spinal stenosis
     Route: 048
  17. CALONAL [Concomitant]
     Active Substance: ACETAMINOPHEN
     Indication: Contusion
     Route: 048
     Dates: start: 20220429, end: 20220502
  18. SENNOSIDES [Concomitant]
     Active Substance: SENNOSIDES
     Indication: Constipation
     Route: 048

REACTIONS (4)
  - Pneumonia [Recovered/Resolved]
  - Faeces pale [Not Recovered/Not Resolved]
  - Supraventricular tachycardia [Not Recovered/Not Resolved]
  - Malaise [Not Recovered/Not Resolved]

NARRATIVE: CASE EVENT DATE: 20220329
